FAERS Safety Report 15386896 (Version 9)
Quarter: 2020Q3

REPORT INFORMATION
  Report Type: Spontaneous
  Country: US (occurrence: US)
  Receive Date: 20180914
  Receipt Date: 20200723
  Transmission Date: 20201102
  Serious: No
  Sender: FDA-Public Use
  Company Number: US-PFIZER INC-2018371607

PATIENT
  Age: 62 Year
  Sex: Female

DRUGS (3)
  1. IBRANCE [Suspect]
     Active Substance: PALBOCICLIB
     Dosage: 75 MG, DAILY
     Dates: start: 20180713
  2. IBRANCE [Suspect]
     Active Substance: PALBOCICLIB
     Dosage: 75 MG, 1X/DAY (ONE CAP DAILY)
     Dates: start: 20190515
  3. IBRANCE [Suspect]
     Active Substance: PALBOCICLIB
     Indication: BREAST CANCER FEMALE
     Dosage: 75 MG, 1X/DAY
     Route: 048
     Dates: start: 20180712, end: 201807

REACTIONS (6)
  - Stomatitis [Unknown]
  - Tongue disorder [Unknown]
  - Hot flush [Unknown]
  - Irritability [Unknown]
  - Aphthous ulcer [Unknown]
  - Mood swings [Unknown]

NARRATIVE: CASE EVENT DATE: 20180910
